FAERS Safety Report 8551880 (Version 3)
Quarter: 2013Q4

REPORT INFORMATION
  Report Type: Spontaneous
  Country: US (occurrence: US)
  Receive Date: 20120508
  Receipt Date: 20131213
  Transmission Date: 20140711
  Serious: Yes (Other)
  Sender: FDA-Public Use
  Company Number: US-ROCHE-1065049

PATIENT
  Age: 17 Year
  Sex: Male
  Weight: 63.56 kg

DRUGS (6)
  1. ACCUTANE [Suspect]
     Indication: ACNE
     Route: 048
     Dates: start: 20031116, end: 20040112
  2. ACCUTANE [Suspect]
     Route: 048
     Dates: end: 200404
  3. ACCUTANE [Suspect]
     Route: 048
     Dates: start: 20050420, end: 200507
  4. AMNESTEEM [Suspect]
     Indication: ACNE
     Route: 048
     Dates: start: 20040107, end: 20040426
  5. AMNESTEEM [Suspect]
     Route: 048
     Dates: start: 20050425, end: 20050707
  6. ADVAIR [Concomitant]

REACTIONS (11)
  - Colitis ulcerative [Unknown]
  - Crohn^s disease [Unknown]
  - Inflammatory bowel disease [Unknown]
  - Irritable bowel syndrome [Unknown]
  - Depression [Not Recovered/Not Resolved]
  - Gastrointestinal haemorrhage [Unknown]
  - Blood cholesterol increased [Unknown]
  - Blood triglycerides increased [Unknown]
  - Lip dry [Unknown]
  - Dry skin [Unknown]
  - Chapped lips [Unknown]
